FAERS Safety Report 12200824 (Version 1)
Quarter: 2016Q1

REPORT INFORMATION
  Report Type: Spontaneous
  Country: US (occurrence: US)
  Receive Date: 20160322
  Receipt Date: 20160322
  Transmission Date: 20160526
  Serious: Yes (Other)
  Sender: FDA-Public Use
  Company Number: US-LPDUSPRD-20160232

PATIENT
  Age: 41 Year
  Sex: Female

DRUGS (4)
  1. ZIDOVUDINE INJECTION (0517-0775-10) [Suspect]
     Active Substance: ZIDOVUDINE
     Dosage: DOSE NOT PROVIDED
     Route: 065
  2. NEVIRAPINE. [Suspect]
     Active Substance: NEVIRAPINE
     Dosage: DOSE NOT PROVIDED
     Route: 065
  3. LAMIVUDINE. [Suspect]
     Active Substance: LAMIVUDINE
     Dosage: DOSE NOT PROVIDED
     Route: 065
  4. ACETAMINOPHEN. [Suspect]
     Active Substance: ACETAMINOPHEN
     Dosage: DOSE NOT PROVIDED
     Route: 065

REACTIONS (2)
  - Liver injury [Unknown]
  - Hepatic failure [Unknown]
